FAERS Safety Report 11869373 (Version 3)
Quarter: 2016Q3

REPORT INFORMATION
  Report Type: Report from Study
  Country: US (occurrence: US)
  Receive Date: 20151227
  Receipt Date: 20160824
  Transmission Date: 20161109
  Serious: No
  Sender: FDA-Public Use
  Company Number: PHHY2015US072173

PATIENT
  Age: 42 Year
  Sex: Male

DRUGS (1)
  1. GILENYA [Suspect]
     Active Substance: FINGOLIMOD HYDROCHLORIDE
     Indication: MULTIPLE SCLEROSIS
     Dosage: UNK, QD
     Route: 048

REACTIONS (11)
  - Lymphocyte count decreased [Unknown]
  - Alanine aminotransferase increased [Unknown]
  - Muscle spasms [Recovered/Resolved]
  - White blood cell count decreased [Unknown]
  - Myalgia [Recovered/Resolved]
  - Blood bilirubin increased [Unknown]
  - Insomnia [Recovered/Resolved]
  - Fatigue [Unknown]
  - Abdominal discomfort [Recovered/Resolved]
  - Pollakiuria [Unknown]
  - Aspartate aminotransferase increased [Unknown]

NARRATIVE: CASE EVENT DATE: 20150416
